FAERS Safety Report 6016158-7 (Version None)
Quarter: 2008Q4

REPORT INFORMATION
  Report Type: 
  Country: None (occurrence: None)
  Receive Date: 20081222
  Receipt Date: 20081215
  Transmission Date: 20090506
  Serious: No
  Sender: FDA-Public Use
  Company Number: JP-ELI_LILLY_AND_COMPANY-JP200812000756

PATIENT
  Sex: Male

DRUGS (3)
  1. HUMALOG MIX 50/50 [Suspect]
     Indication: TYPE 2 DIABETES MELLITUS
     Dosage: 12 IU, EACH MORNING
     Route: 058
     Dates: start: 20081119, end: 20081101
  2. HUMALOG MIX 50/50 [Suspect]
     Dosage: 6 IU, DAILY (1/D)
     Route: 058
     Dates: start: 20081119, end: 20081101
  3. HUMALOG MIX 50/50 [Suspect]
     Dosage: 14 IU, EACH EVENING
     Route: 058
     Dates: start: 20081119, end: 20081101

REACTIONS (2)
  - NEUROPATHY PERIPHERAL [None]
  - PAIN [None]
